FAERS Safety Report 17212954 (Version 1)
Quarter: 2019Q4

REPORT INFORMATION
  Report Type: Spontaneous
  Country: SE (occurrence: SE)
  Receive Date: 20191230
  Receipt Date: 20191230
  Transmission Date: 20200122
  Serious: Yes (Hospitalization)
  Sender: FDA-Public Use
  Company Number: SE-TEVA-2019-SE-1158603

PATIENT
  Age: 71 Year
  Sex: Female

DRUGS (3)
  1. PROPAVAN [Suspect]
     Active Substance: PROPIOMAZINE
     Dosage: 525 MG
     Route: 048
     Dates: start: 20180503, end: 20180503
  2. IMOVANE [Suspect]
     Active Substance: ZOPICLONE
     Dosage: 82.5 MG
     Route: 048
     Dates: start: 20180503, end: 20180503
  3. STESOLID [Suspect]
     Active Substance: DIAZEPAM
     Dosage: 260 MG
     Route: 048
     Dates: start: 20180503, end: 20180503

REACTIONS (5)
  - Depressed level of consciousness [Unknown]
  - Oxygen saturation decreased [Unknown]
  - Mydriasis [Unknown]
  - Intentional overdose [Unknown]
  - Intentional self-injury [Unknown]

NARRATIVE: CASE EVENT DATE: 20180503
